FAERS Safety Report 25698689 (Version 2)
Quarter: 2025Q3

REPORT INFORMATION
  Report Type: Report from Study
  Country: US (occurrence: US)
  Receive Date: 20250819
  Receipt Date: 20250927
  Transmission Date: 20251020
  Serious: Yes (Hospitalization, Other)
  Sender: ALEXION PHARMACEUTICALS
  Company Number: 202505USA014863US

PATIENT
  Sex: Female

DRUGS (3)
  1. ANIFROLUMAB [Suspect]
     Active Substance: ANIFROLUMAB
     Indication: Systemic lupus erythematosus
     Dosage: 300 MILLIGRAM, Q4W
     Dates: start: 20250123
  2. PREDNISONE [Concomitant]
     Active Substance: PREDNISONE
     Route: 065
  3. SODIUM [Concomitant]
     Active Substance: SODIUM
     Route: 065

REACTIONS (10)
  - Pneumonia [Recovered/Resolved]
  - Tachycardia [Unknown]
  - Renal disorder [Unknown]
  - Atrioventricular block [Unknown]
  - Product dose omission issue [Unknown]
  - Asthenia [Recovered/Resolved]
  - Pleural effusion [Unknown]
  - Pyrexia [Unknown]
  - Chest pain [Unknown]
  - Dyspnoea [Unknown]
